FAERS Safety Report 10368905 (Version 1)
Quarter: 2014Q1

REPORT INFORMATION
  Report Type: Spontaneous
  Country: US (occurrence: None)
  Receive Date: 20140306
  Receipt Date: 20140306
  Transmission Date: 20141002
  Serious: Yes (Hospitalization, Other)
  Sender: FDA-Public Use
  Company Number: 163-21880-13022979

PATIENT
  Age: 86 Year
  Sex: Male

DRUGS (3)
  1. REVLIMID (LENALIDOMIDE) (25 MILLIGRAM, CAPSULES) [Suspect]
     Indication: PLASMA CELL MYELOMA
     Dosage: 25 MG, 14 IN 14 D, PO
     Route: 048
     Dates: start: 20121004
  2. PROTONIX (UNKNOWN) [Concomitant]
  3. DEXAMETHASONE (DEXAMETHASONE) (UNKNOWN) [Concomitant]

REACTIONS (9)
  - Neck pain [None]
  - Musculoskeletal pain [None]
  - Bone pain [None]
  - Bone lesion [None]
  - Muscle spasms [None]
  - Decreased appetite [None]
  - Blood pressure increased [None]
  - Local swelling [None]
  - Pain in extremity [None]
